FAERS Safety Report 11292073 (Version 2)
Quarter: 2015Q3

REPORT INFORMATION
  Report Type: Spontaneous
  Country: IL (occurrence: IL)
  Receive Date: 20150722
  Receipt Date: 20150731
  Transmission Date: 20151125
  Serious: Yes (Hospitalization, Other)
  Sender: FDA-Public Use
  Company Number: IL-ASTRAZENECA-2015SE70367

PATIENT
  Age: 74 Year
  Sex: Female
  Weight: 87 kg

DRUGS (9)
  1. REPAGLINIDE. [Concomitant]
     Active Substance: REPAGLINIDE
     Indication: DIABETES MELLITUS
     Route: 048
     Dates: start: 20150117
  2. LANZOPRAZOLE [Concomitant]
     Active Substance: LANSOPRAZOLE
     Indication: GASTRITIS
     Route: 048
     Dates: start: 20130728
  3. VICTOZA [Concomitant]
     Active Substance: LIRAGLUTIDE
     Dates: start: 201010, end: 201310
  4. RAMITENS [Concomitant]
     Indication: LIPIDS ABNORMAL
     Route: 048
     Dates: start: 20101005
  5. ALLORIL [Concomitant]
     Indication: GOUT
     Route: 048
     Dates: start: 20100109
  6. SIMVACOT [Concomitant]
     Indication: HYPERLIPIDAEMIA
     Route: 048
     Dates: start: 20081227
  7. BYDUREON [Suspect]
     Active Substance: EXENATIDE
     Indication: TYPE 2 DIABETES MELLITUS
     Route: 065
     Dates: start: 20150114, end: 201504
  8. LANTUS [Concomitant]
     Active Substance: INSULIN GLARGINE
     Indication: DIABETES MELLITUS
     Route: 058
     Dates: start: 20090319
  9. COLCHICINE. [Concomitant]
     Active Substance: COLCHICINE
     Indication: GOUT
     Route: 048
     Dates: start: 20131022

REACTIONS (2)
  - Intentional product misuse [Unknown]
  - Pancreatitis [Recovered/Resolved]
